FAERS Safety Report 5318086-9 (Version None)
Quarter: 2007Q1

REPORT INFORMATION
  Report Type: 
  Country: None (occurrence: None)
  Receive Date: 20070201
  Receipt Date: 20060331
  Transmission Date: 20070707
  Serious: Yes (Hospitalization)
  Sender: FDA-Public Use
  Company Number: MEDI-0004324

PATIENT
  Sex: Female

DRUGS (2)
  1. ETHYOL [Suspect]
     Indication: NEOPLASM MALIGNANT
     Dosage: INTRAVENOUS
     Route: 042
     Dates: start: 20060328, end: 20060330
  2. ETHYOL [Suspect]
     Indication: NEOPLASM MALIGNANT
     Dosage: INTRAVENOUS
     Route: 042
     Dates: start: 20060331, end: 20060331

REACTIONS (5)
  - BLOOD CALCIUM DECREASED [None]
  - DEHYDRATION [None]
  - HYPOTENSION [None]
  - NAUSEA [None]
  - VOMITING [None]
